FAERS Safety Report 17031735 (Version 1)
Quarter: 2019Q4

REPORT INFORMATION
  Report Type: Spontaneous
  Country: US (occurrence: US)
  Receive Date: 20191114
  Receipt Date: 20191114
  Transmission Date: 20200122
  Serious: No
  Sender: FDA-Public Use
  Company Number: US-ANIPHARMA-2019-US-007925

PATIENT
  Age: 58 Year
  Sex: Male
  Weight: 122.47 kg

DRUGS (4)
  1. PAROXETINE. [Concomitant]
     Active Substance: PAROXETINE
  2. KLONOPIN [Concomitant]
     Active Substance: CLONAZEPAM
  3. ZOCOR [Concomitant]
     Active Substance: SIMVASTATIN
  4. FLECAINIDE ACETATE TABLETS 100 MG [Suspect]
     Active Substance: FLECAINIDE ACETATE
     Indication: ATRIAL FIBRILLATION
     Dosage: 150 MG BID, DOSE REDUCED TO TAKING 1 TABLET AS NEEDED FOR AFIB
     Route: 048
     Dates: start: 201903

REACTIONS (1)
  - Headache [Not Recovered/Not Resolved]

NARRATIVE: CASE EVENT DATE: 201903
